FAERS Safety Report 8273119-5 (Version None)
Quarter: 2012Q2

REPORT INFORMATION
  Report Type: 
  Country: None (occurrence: None)
  Receive Date: 20120411
  Receipt Date: 20120403
  Transmission Date: 20120825
  Serious: Yes (Death, Hospitalization, Other)
  Sender: FDA-Public Use
  Company Number: ES-PFIZER INC-2012088343

PATIENT
  Age: 77 Year
  Sex: Female

DRUGS (2)
  1. AMIODARONE HCL [Suspect]
     Indication: ATRIAL FIBRILLATION
     Dosage: 200 MG, 1X/DAY
     Route: 048
     Dates: start: 20080801, end: 20110301
  2. PROPRANOLOL HYDROCHLORIDE [Concomitant]
     Dosage: UNK
     Dates: start: 20080801, end: 20110607

REACTIONS (6)
  - TOXICITY TO VARIOUS AGENTS [None]
  - MELAENA [None]
  - STRESS CARDIOMYOPATHY [None]
  - PAIN [None]
  - HYPERTHYROIDISM [None]
  - RECTAL HAEMORRHAGE [None]
